FAERS Safety Report 6553920-6 (Version None)
Quarter: 2010Q1

REPORT INFORMATION
  Report Type: 
  Country: None (occurrence: None)
  Receive Date: 20100127
  Receipt Date: 20100115
  Transmission Date: 20100710
  Serious: Yes (Life-Threatening, Hospitalization, Other)
  Sender: FDA-Public Use
  Company Number: JP-PFIZER INC-2009282042

PATIENT
  Age: 35 Year
  Sex: Female
  Weight: 37.2 kg

DRUGS (11)
  1. FARMORUBICIN [Suspect]
     Indication: BREAST CANCER
     Dosage: 70 MG/DAY ONCE DAILY
     Route: 042
     Dates: start: 20080620, end: 20080627
  2. FARMORUBICIN [Suspect]
     Dosage: 80 MG/DAY ONCE DAILY
     Dates: start: 20080711
  3. ENDOXAN [Concomitant]
     Indication: BREAST CANCER
     Dosage: 560 MG/DAY TWICE DAILY
     Route: 042
     Dates: start: 20080620, end: 20080627
  4. ENDOXAN [Concomitant]
     Dosage: 800 MG/DAY ONCE DAILY
     Route: 042
     Dates: start: 20080711
  5. GRAN [Concomitant]
     Dosage: 300 MCG/DAY FOUR TIMES DAILY
     Route: 058
     Dates: start: 20080722, end: 20080725
  6. CIPROXAN [Concomitant]
     Dosage: 2100 MG/DAY SEVEN TIMES DAILY
     Route: 042
     Dates: start: 20080725, end: 20080728
  7. FERROMIA [Concomitant]
     Dosage: UNK
     Route: 048
     Dates: start: 20080613
  8. OXYCONTIN [Concomitant]
     Dosage: UNK
     Route: 048
     Dates: start: 20080602
  9. TAKEPRON [Concomitant]
     Dosage: UNK
     Route: 048
     Dates: start: 20080620
  10. HYPEN [Concomitant]
     Dosage: UNK
     Route: 048
     Dates: start: 20080621
  11. WYPAX [Concomitant]
     Dosage: UNK
     Route: 048
     Dates: start: 20080622

REACTIONS (1)
  - PNEUMOCYSTIS JIROVECI PNEUMONIA [None]
